FAERS Safety Report 6054008-3 (Version None)
Quarter: 2009Q1

REPORT INFORMATION
  Report Type: 
  Country: None (occurrence: None)
  Receive Date: 20090127
  Receipt Date: 20090116
  Transmission Date: 20090719
  Serious: Yes (Other)
  Sender: FDA-Public Use
  Company Number: SE-PFIZER INC-2009156423

PATIENT

DRUGS (2)
  1. LYRICA [Suspect]
     Dosage: 75 MG, 2X/DAY
     Route: 048
  2. REMERON [Concomitant]
     Dosage: 30 MG, UNK
     Route: 048

REACTIONS (2)
  - CONVULSION [None]
  - OVERDOSE [None]
